FAERS Safety Report 12810742 (Version 1)
Quarter: 2016Q4

REPORT INFORMATION
  Report Type: Spontaneous
  Country: US (occurrence: US)
  Receive Date: 20161005
  Receipt Date: 20161005
  Transmission Date: 20170207
  Serious: No
  Sender: FDA-Public Use
  Company Number: US-009507513-1609USA011356

PATIENT
  Age: 30 Year
  Sex: Female
  Weight: 86.17 kg

DRUGS (1)
  1. NEXPLANON [Suspect]
     Active Substance: ETONOGESTREL
     Indication: CONTRACEPTION
     Dosage: IMPLANT ON LEFT ARM / 3 YEAR IMPLANT
     Route: 059
     Dates: start: 20160823

REACTIONS (5)
  - Anxiety [Unknown]
  - Headache [Unknown]
  - Epistaxis [Unknown]
  - Weight increased [Unknown]
  - Implant site pain [Unknown]

NARRATIVE: CASE EVENT DATE: 2016
